FAERS Safety Report 23064015 (Version 3)
Quarter: 2023Q4

REPORT INFORMATION
  Report Type: Report from Study
  Country: US (occurrence: US)
  Receive Date: 20231013
  Receipt Date: 20231218
  Transmission Date: 20240110
  Serious: Yes (Hospitalization, Other)
  Sender: FDA-Public Use
  Company Number: US-002147023-NVSC2023US217870

PATIENT
  Sex: Female

DRUGS (1)
  1. ILARIS [Suspect]
     Active Substance: CANAKINUMAB
     Indication: Juvenile idiopathic arthritis
     Dosage: 300 MG, Q4W
     Route: 058
     Dates: start: 202309

REACTIONS (6)
  - Tachycardia [Unknown]
  - Malaise [Unknown]
  - Chest pain [Unknown]
  - Palpitations [Unknown]
  - Oxygen consumption decreased [Unknown]
  - Dyspnoea [Unknown]
